FAERS Safety Report 4363860-9 (Version None)
Quarter: 2004Q2

REPORT INFORMATION
  Report Type: 
  Country: None (occurrence: None)
  Receive Date: 20040521
  Receipt Date: 20040521
  Transmission Date: 20050107
  Serious: Yes (Other)
  Sender: FDA-Public Use
  Company Number: None

PATIENT
  Age: 51 Year
  Sex: Female
  Weight: 96.6162 kg

DRUGS (2)
  1. MIDAZOLAM 2 M/2ML VIAL [Suspect]
     Indication: CATHETER PLACEMENT
     Dosage: 1 MG
     Dates: start: 20040519
  2. MIDAZOLAM 2 M/2ML VIAL [Suspect]
     Indication: PREOPERATIVE CARE
     Dosage: 1 MG
     Dates: start: 20040519

REACTIONS (1)
  - SEDATION [None]
